FAERS Safety Report 6053024-5 (Version None)
Quarter: 2009Q1

REPORT INFORMATION
  Report Type: 
  Country: None (occurrence: None)
  Receive Date: 20090127
  Receipt Date: 20090116
  Transmission Date: 20090719
  Serious: Yes (Other)
  Sender: FDA-Public Use
  Company Number: CA-JNJFOC-20090103947

PATIENT
  Sex: Female
  Weight: 54.5 kg

DRUGS (1)
  1. REMICADE [Suspect]
     Indication: CROHN'S DISEASE
     Dosage: ^TO THE PRESENT^
     Route: 042

REACTIONS (1)
  - RECURRENT CANCER [None]
